FAERS Safety Report 16618397 (Version 2)
Quarter: 2019Q3

REPORT INFORMATION
  Report Type: Spontaneous
  Country: US (occurrence: US)
  Receive Date: 20190723
  Receipt Date: 20190808
  Transmission Date: 20191004
  Serious: Yes (Hospitalization, Other)
  Sender: FDA-Public Use
  Company Number: US-SUNOVION-2019SUN003060

PATIENT
  Age: 51 Year
  Sex: Female

DRUGS (31)
  1. LATUDA [Suspect]
     Active Substance: LURASIDONE HYDROCHLORIDE
     Dosage: 120 MG, QD
     Route: 048
  2. ESTRADIOL. [Concomitant]
     Active Substance: ESTRADIOL
  3. CLONAZEPAM. [Concomitant]
     Active Substance: CLONAZEPAM
     Dosage: 1 MG, BID
  4. VERAPAMIL [Concomitant]
     Active Substance: VERAPAMIL HYDROCHLORIDE
  5. CLONAZEPAM. [Concomitant]
     Active Substance: CLONAZEPAM
     Dosage: 2 MG, HS
  6. CLONAZEPAM. [Concomitant]
     Active Substance: CLONAZEPAM
     Dosage: 3 MG, SINGLE
  7. CLONIDINE. [Concomitant]
     Active Substance: CLONIDINE
     Dosage: 0.1 MG, BID
  8. VITAMIN A [Concomitant]
     Active Substance: VITAMIN A
  9. VITAMIN B COMPLEX [Concomitant]
     Active Substance: CYANOCOBALAMIN\DEXPANTHENOL\NIACINAMIDE\PYRIDOXINE HYDROCHLORIDE\RIBOFLAVIN 5^-PHOSPHATE SODIUM\THIAMINE HYDROCHLORIDE\VITAMIN B COMPLEX
  10. CALCIUM CITRATE MALATE;COLECALCIFEROL [Concomitant]
  11. FUROSEMIDE. [Concomitant]
     Active Substance: FUROSEMIDE
  12. LATUDA [Suspect]
     Active Substance: LURASIDONE HYDROCHLORIDE
     Indication: BIPOLAR DISORDER
     Dosage: 60 MG, QD
     Route: 048
  13. LAMOTRIGINE. [Concomitant]
     Active Substance: LAMOTRIGINE
     Dosage: 250 MG, QD
  14. CLONIDINE. [Concomitant]
     Active Substance: CLONIDINE
     Dosage: 0.2 MG, SINGLE
  15. VITAMIN K2 [Concomitant]
     Active Substance: MENAQUINONE 6
  16. ZINC SULFATE. [Concomitant]
     Active Substance: ZINC SULFATE
  17. PANCRELIPASE. [Concomitant]
     Active Substance: PANCRELIPASE
  18. CYCLOBENZAPRINE. [Concomitant]
     Active Substance: CYCLOBENZAPRINE
  19. MIRENA [Concomitant]
     Active Substance: LEVONORGESTREL
  20. TRAZODONE HYDROCHLORIDE. [Concomitant]
     Active Substance: TRAZODONE HYDROCHLORIDE
     Dosage: 100 MG, HS
  21. TEMAZEPAM. [Concomitant]
     Active Substance: TEMAZEPAM
     Dosage: 30 MG, AS NECESSARY
  22. OLANZAPINE. [Concomitant]
     Active Substance: OLANZAPINE
     Dosage: 2.5-5 MG, HS
  23. LAMOTRIGINE. [Concomitant]
     Active Substance: LAMOTRIGINE
     Dosage: 100 MG, QD
  24. OMEGA-3 FATTY ACIDS [Concomitant]
     Active Substance: OMEGA-3 FATTY ACIDS
  25. COPPER GLUCONATE [Concomitant]
     Active Substance: COPPER GLUCONATE
  26. OXYMETAZOLINE [Concomitant]
     Active Substance: OXYMETAZOLINE
  27. SUMATRIPTAN. [Concomitant]
     Active Substance: SUMATRIPTAN
  28. OLANZAPINE. [Concomitant]
     Active Substance: OLANZAPINE
     Dosage: 10 MG, QD
  29. LATUDA [Suspect]
     Active Substance: LURASIDONE HYDROCHLORIDE
     Dosage: UNK
     Route: 048
  30. ZOLPIDEM [Concomitant]
     Active Substance: ZOLPIDEM TARTRATE
     Dosage: 15 MG, HS
  31. METRONIDAZOLE. [Concomitant]
     Active Substance: METRONIDAZOLE

REACTIONS (16)
  - Appetite disorder [Unknown]
  - Fatigue [Not Recovered/Not Resolved]
  - Weight increased [Unknown]
  - Depression [Recovered/Resolved]
  - Affective disorder [Unknown]
  - Tearfulness [Unknown]
  - Mania [Recovered/Resolved]
  - Anxiety [Unknown]
  - Insomnia [Not Recovered/Not Resolved]
  - Poor quality sleep [Unknown]
  - Duodenal switch [Unknown]
  - Tachyphrenia [Unknown]
  - Malabsorption [Unknown]
  - Therapeutic product effect incomplete [Unknown]
  - Intentional product misuse [Unknown]
  - Asthenia [Unknown]

NARRATIVE: CASE EVENT DATE: 2016
